FAERS Safety Report 9453440 (Version 1)
Quarter: 2013Q3

REPORT INFORMATION
  Report Type: Report from Study
  Country: CA (occurrence: CA)
  Receive Date: 20130812
  Receipt Date: 20130812
  Transmission Date: 20140515
  Serious: Yes (Other)
  Sender: FDA-Public Use
  Company Number: CA-JNJFOC-20130801592

PATIENT
  Age: 52 Year
  Sex: Female
  Weight: 60 kg

DRUGS (8)
  1. REMICADE [Suspect]
     Indication: RHEUMATOID ARTHRITIS
     Dosage: #121 INFUSION
     Route: 042
     Dates: start: 20130801
  2. REMICADE [Suspect]
     Indication: RHEUMATOID ARTHRITIS
     Route: 042
     Dates: start: 2002
  3. METHOTREXATE [Concomitant]
     Indication: RHEUMATOID ARTHRITIS
     Route: 058
  4. SULPHASALAZINE [Concomitant]
     Indication: RHEUMATOID ARTHRITIS
     Route: 048
  5. FLOVENT [Concomitant]
     Indication: ASTHMA
     Route: 065
  6. VENTOLIN [Concomitant]
     Indication: ASTHMA
     Route: 065
  7. AMITRIPTYLINE [Concomitant]
     Indication: FIBROMYALGIA
     Route: 048
  8. CO-ETIDROCAL [Concomitant]
     Indication: OSTEOPOROSIS
     Route: 065

REACTIONS (2)
  - White blood cell count decreased [Not Recovered/Not Resolved]
  - Splenomegaly [Not Recovered/Not Resolved]
